FAERS Safety Report 9539058 (Version 3)
Quarter: 2013Q4

REPORT INFORMATION
  Report Type: Report from Study
  Country: BR (occurrence: BR)
  Receive Date: 20130909
  Receipt Date: 20131114
  Transmission Date: 20140711
  Serious: Yes (Other)
  Sender: FDA-Public Use
  Company Number: PHHY2013BR098559

PATIENT
  Age: 54 Year
  Sex: Female
  Weight: 75 kg

DRUGS (11)
  1. ACLASTA [Suspect]
     Indication: OSTEOPOROSIS
     Dosage: 5 MG, ANNUALLY
     Route: 042
     Dates: start: 20130821
  2. NAPRIX A [Concomitant]
     Dosage: UNK UKN, UNK
     Dates: start: 2008
  3. NAPRIX A [Concomitant]
     Dosage: UNK UKN, UNK
     Dates: start: 20130822
  4. INDAPEN [Concomitant]
     Dosage: UNK UKN, UNK
     Dates: start: 2008
  5. GALVUS [Concomitant]
     Dosage: UNK UKN, UNK
  6. PREDNISONE [Concomitant]
     Dosage: UNK UKN, UNK
  7. CRESTOR [Concomitant]
     Dosage: UNK UKN, UNK
     Dates: start: 2011
  8. NAPRIX [Concomitant]
     Dosage: UNK UKN, UNK
     Dates: start: 2011
  9. GALVUS MET [Concomitant]
     Dosage: UNK UKN, UNK
     Dates: start: 201201
  10. TECNOMET//METHOTREXATE [Concomitant]
     Dosage: UNK UKN, UNK
     Dates: start: 2013
  11. FOLIC ACID [Concomitant]
     Dosage: UNK UKN, UNK
     Dates: start: 201308

REACTIONS (13)
  - Arrhythmia [Recovered/Resolved]
  - Blood pressure increased [Recovering/Resolving]
  - Depressed mood [Recovered/Resolved]
  - Extrasystoles [Unknown]
  - Abdominal pain upper [Recovered/Resolved]
  - Vomiting [Recovering/Resolving]
  - Malaise [Recovering/Resolving]
  - Arthralgia [Recovered/Resolved]
  - Fatigue [Recovered/Resolved]
  - Nausea [Recovered/Resolved]
  - Pain [Unknown]
  - Dizziness [Unknown]
  - Dyspnoea [Unknown]
